FAERS Safety Report 8888755 (Version 1)
Quarter: 2012Q4

REPORT INFORMATION
  Report Type: 
  Country: GB (occurrence: GB)
  Receive Date: 20121106
  Receipt Date: 20121106
  Transmission Date: 20130627
  Serious: Yes (Hospitalization, Other)
  Sender: FDA-Public Use
  Company Number: GB-AMGEN-GBRSP2012062420

PATIENT
  Age: 81 Year
  Sex: Female

DRUGS (5)
  1. PROLIA [Suspect]
     Indication: OSTEOPOROSIS
     Dosage: 60 mg, q6mo
     Route: 058
     Dates: start: 20110613, end: 20110613
  2. LEVOTHYROXINE [Concomitant]
     Indication: HYPOTHYROIDISM
     Dosage: 125 mg, qd
     Route: 048
     Dates: start: 19971203
  3. ALENDRONIC ACID [Concomitant]
     Indication: OSTEOPOROSIS
     Dosage: 10 mg, qd
     Route: 048
     Dates: start: 20090605
  4. AMINOPYRINE [Concomitant]
     Indication: SLEEP DISORDER
     Dosage: 25 mg, qd
     Route: 048
     Dates: start: 19990701
  5. OMEPRAZOLE [Concomitant]
     Indication: DYSPEPSIA
     Dosage: 10 mg, bid
     Route: 048
     Dates: start: 20050215, end: 20120327

REACTIONS (3)
  - Urinary tract infection [Recovering/Resolving]
  - Cystitis [Recovered/Resolved]
  - Escherichia urinary tract infection [Unknown]
